FAERS Safety Report 13785975 (Version 1)
Quarter: 2017Q3

REPORT INFORMATION
  Report Type: Report from Study
  Country: FR (occurrence: FR)
  Receive Date: 20170725
  Receipt Date: 20170725
  Transmission Date: 20171127
  Serious: Yes (Death, Hospitalization, Other)
  Sender: FDA-Public Use
  Company Number: FR-BAXTER-2017BAX028324

PATIENT
  Age: 79 Year
  Sex: Male
  Weight: 91 kg

DRUGS (4)
  1. METHOTREXATE SODIUM. [Suspect]
     Active Substance: METHOTREXATE SODIUM
     Indication: OSTEOSARCOMA
     Dosage: REGIMEN 1, CUMULATIVE DOSAGE OF 20 MG SINCE 1ST ADMINISTRATION
     Route: 048
     Dates: start: 20170615, end: 20170625
  2. ENDOXAN 50 MG, COMPRIM? ENROB? [Suspect]
     Active Substance: CYCLOPHOSPHAMIDE
     Indication: OSTEOSARCOMA
     Dosage: REGIMEN 1,CUMULATIVE DOSE SINCE 1ST ADMINISTRATION 700 MG
     Route: 048
     Dates: start: 20170615, end: 20170621
  3. SIROLIMUS. [Suspect]
     Active Substance: SIROLIMUS
     Indication: OSTEOSARCOMA
     Dosage: REGIMEN 1,CUMULATIVE DOSE SINCE 1ST ADMINISTRATION 44 MG
     Route: 048
     Dates: start: 20170616, end: 20170625
  4. ZOLEDRONIC ACID [Suspect]
     Active Substance: ZOLEDRONIC ACID
     Indication: OSTEOSARCOMA
     Dosage: REGIMEN 1, CUMULATIVE DOSE SINCE 1ST ADMINISTRATION 4 MG
     Route: 042
     Dates: start: 20170616, end: 20170616

REACTIONS (1)
  - Lung disorder [Fatal]
